FAERS Safety Report 17529205 (Version 3)
Quarter: 2020Q2

REPORT INFORMATION
  Report Type: Spontaneous
  Country: ES (occurrence: ES)
  Receive Date: 20200311
  Receipt Date: 20200604
  Transmission Date: 20200713
  Serious: Yes (Other)
  Sender: FDA-Public Use
  Company Number: ES-AMERICAN REGENT INC-2020000632

PATIENT
  Age: 81 Year
  Sex: Male

DRUGS (15)
  1. FERINJECT [Suspect]
     Active Substance: FERRIC CARBOXYMALTOSE
     Dosage: UNK
     Route: 042
     Dates: start: 20200122
  2. EMCONCOR COR [Concomitant]
     Active Substance: BISOPROLOL
     Indication: PRODUCT USED FOR UNKNOWN INDICATION
     Dosage: 28 TABLETS (2.5 MILLIGRAM, 1 IN 1 D)
     Route: 048
  3. ATORVASTATINA CINFA [Concomitant]
     Active Substance: ATORVASTATIN CALCIUM
     Indication: PRODUCT USED FOR UNKNOWN INDICATION
     Dosage: 40 MILLIGRAM, 1 IN 1 D
     Route: 048
  4. OPTOVITE B12 [Concomitant]
     Active Substance: CYANOCOBALAMIN
     Indication: PRODUCT USED FOR UNKNOWN INDICATION
     Dosage: 5 AMPOULES (1000 MG,1 IN 1 M)
     Route: 030
     Dates: start: 20120602
  5. FLUTIFORM [Concomitant]
     Active Substance: FLUTICASONE PROPIONATE\FORMOTEROL FUMARATE
     Indication: PRODUCT USED FOR UNKNOWN INDICATION
     Dosage: 250MICROGRAM/10 MICROGRAM (2 DOSAGE FORM, 1 IN 12 HR)
     Route: 055
     Dates: start: 20191211
  6. FERINJECT [Suspect]
     Active Substance: FERRIC CARBOXYMALTOSE
     Indication: IRON DEFICIENCY ANAEMIA
     Dosage: 5 VIALS (500 MILLIGRAM, 1 IN 1 TOTAL)
     Route: 042
     Dates: start: 20200213, end: 20200213
  7. ALOPURINOL NORMON [Concomitant]
     Active Substance: ALLOPURINOL
     Indication: PRODUCT USED FOR UNKNOWN INDICATION
     Dosage: 30 TABLETS (300 MG, 1 IN 1 D)
     Route: 048
     Dates: start: 20161216
  8. METFORMIN [Concomitant]
     Active Substance: METFORMIN HYDROCHLORIDE
     Indication: PRODUCT USED FOR UNKNOWN INDICATION
     Dosage: 850 MG (425 MG, 1 IN 12 HR)
     Route: 048
     Dates: end: 20180910
  9. LUMIGAN [Concomitant]
     Active Substance: BIMATOPROST
     Indication: PRODUCT USED FOR UNKNOWN INDICATION
     Dosage: 30 CONTAINERS (0.8 MILLILITER, 1 IN 1 D)
     Route: 047
     Dates: start: 20160509
  10. SEGURIL [Concomitant]
     Active Substance: FUROSEMIDE
     Indication: PRODUCT USED FOR UNKNOWN INDICATION
     Dosage: 30 TABLETS (40 MG, 1 IN 12 HR)
     Route: 048
     Dates: start: 20190226
  11. EPLERENONA RATIOPHARM [Concomitant]
     Indication: PRODUCT USED FOR UNKNOWN INDICATION
     Dosage: 30 TABLETS (50 MILLIGRAM, 1 IN 1 D)
     Route: 048
     Dates: start: 20190411
  12. ESOMEPRAZOL CINFA [Concomitant]
     Indication: PRODUCT USED FOR UNKNOWN INDICATION
     Dosage: 20 MG (20 MG, 1 IN1 D)
     Route: 048
     Dates: start: 20150514
  13. EDEMOX                             /00016901/ [Concomitant]
     Active Substance: ACETAZOLAMIDE
     Indication: PRODUCT USED FOR UNKNOWN INDICATION
     Dosage: 20 TABLETS (250 MG, 1 IN 2 D)
     Route: 048
  14. ADIRO [Concomitant]
     Active Substance: ASPIRIN
     Indication: PRODUCT USED FOR UNKNOWN INDICATION
     Dosage: 30 TABLETS (PVC ALUMINIUM) (100 MILLIGRAM, 1 IN 1 D)
     Route: 048
     Dates: start: 20170516
  15. TELMISARTAN. [Concomitant]
     Active Substance: TELMISARTAN
     Indication: PRODUCT USED FOR UNKNOWN INDICATION
     Dosage: 28 TABLETS (20 MILLIGRAM, 1 IN 1 D)
     Route: 048
     Dates: start: 20150209

REACTIONS (4)
  - Nausea [Recovered/Resolved]
  - Dizziness [Recovered/Resolved]
  - Malaise [Recovered/Resolved]
  - Chest pain [Unknown]

NARRATIVE: CASE EVENT DATE: 202001
